FAERS Safety Report 8952669 (Version 1)
Quarter: 2012Q4

REPORT INFORMATION
  Report Type: 
  Country: JP (occurrence: JP)
  Receive Date: 20121205
  Receipt Date: 20121205
  Transmission Date: 20130627
  Serious: Yes (Hospitalization)
  Sender: FDA-Public Use
  Company Number: JP-009507513-1212JPN000323

PATIENT
  Age: 70 Year
  Sex: Male

DRUGS (2)
  1. TEMODAL [Suspect]
     Dosage: Daily dosage unknown
     Route: 048
     Dates: start: 201211
  2. TEMODAL [Suspect]
     Dosage: Daily dosage unknown
     Route: 048
     Dates: start: 201205

REACTIONS (1)
  - Venous thrombosis [Unknown]
